FAERS Safety Report 25796164 (Version 1)
Quarter: 2025Q3

REPORT INFORMATION
  Report Type: Spontaneous
  Country: US (occurrence: US)
  Receive Date: 20250912
  Receipt Date: 20250912
  Transmission Date: 20251021
  Serious: No
  Sender: LIQUIDIA TECHNOLOGIES
  Company Number: US-LIQUIDIA TECHNOLOGIES, INC.-LIQ-2025-000398

PATIENT

DRUGS (2)
  1. YUTREPIA [Suspect]
     Active Substance: TREPROSTINIL SODIUM
     Indication: Idiopathic pulmonary fibrosis
     Dosage: 26.5 MICROGRAM, QID (INHALATION 4 TIMES A DAY)
     Route: 055
     Dates: start: 202508
  2. YUTREPIA [Suspect]
     Active Substance: TREPROSTINIL SODIUM
     Indication: Idiopathic interstitial pneumonia

REACTIONS (7)
  - Dizziness [Unknown]
  - Diarrhoea [Unknown]
  - Dizziness [Unknown]
  - Illness [Unknown]
  - Fatigue [Unknown]
  - Feeling abnormal [Unknown]
  - Product dose omission issue [Unknown]

NARRATIVE: CASE EVENT DATE: 20250801
